FAERS Safety Report 6389358-4 (Version None)
Quarter: 2009Q4

REPORT INFORMATION
  Report Type: 
  Country: None (occurrence: None)
  Receive Date: 20091006
  Receipt Date: 20091001
  Transmission Date: 20100525
  Serious: Yes (Other)
  Sender: FDA-Public Use
  Company Number: TR-BAYER-200923446GPV

PATIENT
  Age: 23 Year
  Sex: Female
  Weight: 50 kg

DRUGS (1)
  1. BETAFERON [Suspect]
     Indication: MULTIPLE SCLEROSIS
     Dosage: TOTAL OF 2 INJECTION
     Route: 058
     Dates: start: 20090603, end: 20090606

REACTIONS (2)
  - AUTOIMMUNE HEPATITIS [None]
  - CHRONIC HEPATITIS [None]
